FAERS Safety Report 6931602-6 (Version None)
Quarter: 2010Q3

REPORT INFORMATION
  Report Type: 
  Country: None (occurrence: None)
  Receive Date: 20100819
  Receipt Date: 20100813
  Transmission Date: 20110219
  Serious: Yes (Hospitalization, Other)
  Sender: FDA-Public Use
  Company Number: BR-SANOFI-AVENTIS-2010SA048485

PATIENT
  Age: 6 Year
  Sex: Male
  Weight: 28 kg

DRUGS (4)
  1. LANTUS [Suspect]
     Indication: TYPE 1 DIABETES MELLITUS
     Dosage: ACCORDING TO GLYCEMIA (8-12 UNITS)
     Route: 058
     Dates: start: 20080101
  2. OPTIPEN [Suspect]
  3. HUMALOG [Concomitant]
     Indication: TYPE 1 DIABETES MELLITUS
     Dosage: ACCORDING TO GLYCEMIA
     Route: 058
     Dates: start: 20080101
  4. FLUTICASONE PROPIONATE/SALMETEROL XINAFOATE [Concomitant]
     Indication: PNEUMONIA
     Dates: start: 20090101

REACTIONS (6)
  - BLOOD GLUCOSE INCREASED [None]
  - BRONCHOPNEUMONIA [None]
  - COUGH [None]
  - FATIGUE [None]
  - NASOPHARYNGITIS [None]
  - WHEEZING [None]
